FAERS Safety Report 9738315 (Version 1)
Quarter: 2013Q4

REPORT INFORMATION
  Report Type: Spontaneous
  Country: US (occurrence: US)
  Receive Date: 20131208
  Receipt Date: 20131208
  Transmission Date: 20140711
  Serious: Yes (Hospitalization)
  Sender: FDA-Public Use
  Company Number: US-SANOFI-AVENTIS-2013SA083977

PATIENT
  Sex: Male

DRUGS (2)
  1. FERRLECIT [Suspect]
     Indication: ANAEMIA
     Route: 065
  2. FERRLECIT [Suspect]
     Indication: RENAL DISORDER
     Route: 065

REACTIONS (2)
  - Loss of consciousness [Unknown]
  - Diarrhoea [Recovered/Resolved]
